APPROVED DRUG PRODUCT: DIAZEPAM
Active Ingredient: DIAZEPAM
Strength: 10MG/2ML (5MG/ML)
Dosage Form/Route: INJECTABLE;INJECTION
Application: A210363 | Product #001 | TE Code: AP
Applicant: REGCON HOLDINGS LLC
Approved: Mar 18, 2019 | RLD: No | RS: Yes | Type: RX